FAERS Safety Report 15191113 (Version 1)
Quarter: 2018Q3

REPORT INFORMATION
  Report Type: Spontaneous
  Country: US (occurrence: US)
  Receive Date: 20180625
  Receipt Date: 20180625
  Transmission Date: 20181010
  Serious: No
  Sender: FDA-Public Use
  Company Number: None

PATIENT
  Age: 51 Year
  Sex: Male
  Weight: 89.1 kg

DRUGS (1)
  1. CLOPIDOGREL [Suspect]
     Active Substance: CLOPIDOGREL BISULFATE
     Indication: BRAIN STENT INSERTION
     Route: 048
     Dates: start: 20120222, end: 20120326

REACTIONS (1)
  - Ageusia [None]

NARRATIVE: CASE EVENT DATE: 20120326
